FAERS Safety Report 9254669 (Version 1)
Quarter: 2013Q2

REPORT INFORMATION
  Report Type: Spontaneous
  Country: AR (occurrence: None)
  Receive Date: 20130419
  Receipt Date: 20130419
  Transmission Date: 20140414
  Serious: Yes (Hospitalization)
  Sender: FDA-Public Use
  Company Number: FK201301182

PATIENT
  Age: 24 Year
  Sex: Male

DRUGS (1)
  1. PROPOFOL [Suspect]
     Indication: COLONOSCOPY
     Route: 040

REACTIONS (4)
  - Sepsis [None]
  - Cyanosis [None]
  - Burkholderia infection [None]
  - Suspected transmission of an infectious agent via product [None]
